FAERS Safety Report 5835406-7 (Version None)
Quarter: 2008Q3

REPORT INFORMATION
  Report Type: 
  Country: None (occurrence: None)
  Receive Date: 20080806
  Receipt Date: 20080725
  Transmission Date: 20090109
  Serious: Yes (Life-Threatening, Hospitalization)
  Sender: FDA-Public Use
  Company Number: FR-AVENTIS-200812819FR

PATIENT
  Age: 53 Year
  Sex: Female

DRUGS (2)
  1. TAXOTERE [Suspect]
     Route: 042
     Dates: start: 20080701, end: 20080701
  2. CISPLATYL [Concomitant]
     Route: 042
     Dates: start: 20080701, end: 20080701

REACTIONS (8)
  - AGRANULOCYTOSIS [None]
  - ALOPECIA [None]
  - DIARRHOEA [None]
  - HEPATIC FAILURE [None]
  - INFLAMMATION [None]
  - RASH ERYTHEMATOUS [None]
  - RENAL FAILURE [None]
  - THROMBOCYTOPENIA [None]
